FAERS Safety Report 14246726 (Version 6)
Quarter: 2022Q4

REPORT INFORMATION
  Report Type: Spontaneous
  Country: US (occurrence: US)
  Receive Date: 20171204
  Receipt Date: 20221130
  Transmission Date: 20230113
  Serious: Yes (Other)
  Sender: FDA-Public Use
  Company Number: US-PFIZER INC-2017514361

PATIENT
  Age: 59 Year
  Sex: Male

DRUGS (1)
  1. XELJANZ [Suspect]
     Active Substance: TOFACITINIB CITRATE
     Dosage: 5 MG

REACTIONS (7)
  - Deafness [Unknown]
  - Pain [Unknown]
  - Gait inability [Unknown]
  - COVID-19 [Unknown]
  - Mobility decreased [Unknown]
  - Arthritis [Unknown]
  - Hypoacusis [Unknown]
